FAERS Safety Report 6400126-7 (Version None)
Quarter: 2009Q4

REPORT INFORMATION
  Report Type: 
  Country: None (occurrence: None)
  Receive Date: 20091014
  Receipt Date: 20091002
  Transmission Date: 20100525
  Serious: Yes (Other)
  Sender: FDA-Public Use
  Company Number: CA-JNJFOC-20091001833

PATIENT
  Sex: Male
  Weight: 57 kg

DRUGS (6)
  1. REMICADE [Suspect]
     Indication: CROHN'S DISEASE
     Dosage: FIRST INFUSION, 300 MG
     Route: 042
  2. ENTOCORT EC [Concomitant]
     Route: 048
  3. VITAMIN D [Concomitant]
     Route: 048
  4. CALCIUM [Concomitant]
  5. TRAMAGIT [Concomitant]
     Indication: NECK PAIN
  6. PANTOPRAZOLE [Concomitant]

REACTIONS (5)
  - BLOOD PRESSURE INCREASED [None]
  - CHEST PAIN [None]
  - DEPRESSED LEVEL OF CONSCIOUSNESS [None]
  - NAUSEA [None]
  - PALLOR [None]
